FAERS Safety Report 23314977 (Version 2)
Quarter: 2025Q2

REPORT INFORMATION
  Report Type: Report from Study
  Country: US (occurrence: US)
  Receive Date: 20231219
  Receipt Date: 20250522
  Transmission Date: 20250716
  Serious: No
  Sender: KYOWA
  Company Number: US-KYOWAKIRIN-2023KK020240

PATIENT

DRUGS (3)
  1. BUROSUMAB [Suspect]
     Active Substance: BUROSUMAB
     Indication: Hereditary hypophosphataemic rickets
     Dosage: 20 MG, 1X/2 WEEKS
     Route: 058
  2. BUROSUMAB [Suspect]
     Active Substance: BUROSUMAB
     Dosage: 30 MG, 1X/2 WEEKS
     Route: 058
  3. BUROSUMAB [Suspect]
     Active Substance: BUROSUMAB
     Indication: Hereditary hypophosphataemic rickets
     Dosage: UNK, 1X/2 WEEKS
     Route: 065

REACTIONS (6)
  - Laboratory test abnormal [Unknown]
  - Respiratory disorder [Unknown]
  - Oropharyngeal pain [Unknown]
  - Blood phosphorus decreased [Unknown]
  - Fatigue [Unknown]
  - Product dose omission issue [Unknown]
